FAERS Safety Report 11329181 (Version 1)
Quarter: 2015Q3

REPORT INFORMATION
  Report Type: Spontaneous
  Country: US (occurrence: US)
  Receive Date: 20150803
  Receipt Date: 20150803
  Transmission Date: 20151125
  Serious: No
  Sender: FDA-Public Use
  Company Number: US-AMGEN-USASP2015076867

PATIENT
  Age: 55 Year
  Sex: Female

DRUGS (1)
  1. ENBREL [Suspect]
     Active Substance: ETANERCEPT
     Indication: PSORIATIC ARTHROPATHY
     Dosage: UNK
     Route: 065

REACTIONS (16)
  - Feeling hot [Unknown]
  - Impetigo [Unknown]
  - Pain [Unknown]
  - Feeling abnormal [Unknown]
  - Injection site urticaria [Unknown]
  - Adverse drug reaction [Unknown]
  - Head injury [Unknown]
  - Injection site reaction [Unknown]
  - Injection site erythema [Unknown]
  - Joint injury [Unknown]
  - Pruritus [Unknown]
  - Sinusitis [Recovered/Resolved]
  - Nasopharyngitis [Recovered/Resolved]
  - Fall [Unknown]
  - Injection site pruritus [Unknown]
  - Injection site bruising [Unknown]

NARRATIVE: CASE EVENT DATE: 2015
